FAERS Safety Report 19067651 (Version 1)
Quarter: 2021Q1

REPORT INFORMATION
  Report Type: Spontaneous
  Country: GB (occurrence: GB)
  Receive Date: 20210329
  Receipt Date: 20210329
  Transmission Date: 20210420
  Serious: Yes (Other)
  Sender: FDA-Public Use
  Company Number: GB-TEVA-2021-GB-1894355

PATIENT
  Age: 28 Year
  Sex: Female

DRUGS (7)
  1. GAVISCON ADVANCE [Concomitant]
     Active Substance: POTASSIUM BICARBONATE\SODIUM ALGINATE
  2. RIGEVIDON [Concomitant]
  3. SUMATRIPTAN SUCCINATE. [Concomitant]
     Active Substance: SUMATRIPTAN SUCCINATE
  4. CLARITHROMYCIN CITRATE [Suspect]
     Active Substance: CLARITHROMYCIN CITRATE
     Indication: HELICOBACTER INFECTION
     Dosage: 1000 MILLIGRAM DAILY; 500MG BD
     Route: 048
     Dates: start: 20210107, end: 20210108
  5. FLUCLOXACILLIN [Concomitant]
     Active Substance: FLUCLOXACILLIN
  6. BECLOMETASONE [Concomitant]
     Active Substance: BECLOMETHASONE DIPROPIONATE
  7. AMOXICILLIN. [Suspect]
     Active Substance: AMOXICILLIN
     Indication: HELICOBACTER INFECTION
     Dosage: 1000 MILLIGRAM DAILY; 500MG BD
     Route: 048
     Dates: start: 20210107, end: 20210108

REACTIONS (3)
  - Paraesthesia oral [Unknown]
  - Periorbital swelling [Unknown]
  - Urticaria [Recovering/Resolving]

NARRATIVE: CASE EVENT DATE: 20210107
